FAERS Safety Report 9103548 (Version 1)
Quarter: 2013Q1

REPORT INFORMATION
  Report Type: Spontaneous
  Country: US (occurrence: US)
  Receive Date: 20130218
  Receipt Date: 20130218
  Transmission Date: 20140127
  Serious: Yes (Other)
  Sender: FDA-Public Use
  Company Number: US-BAYER-2013-020263

PATIENT
  Age: 27 Year
  Sex: Female

DRUGS (8)
  1. YAZ [Suspect]
     Dosage: UNK
     Dates: start: 200903, end: 201004
  2. YAZ [Suspect]
     Dosage: UNK
     Dates: start: 201009, end: 20110704
  3. YASMIN [Suspect]
     Dosage: UNK
     Dates: start: 200903, end: 201004
  4. YASMIN [Suspect]
     Dosage: UNK
     Dates: start: 201009, end: 20110704
  5. OCELLA [Suspect]
     Dosage: UNK
     Dates: start: 200903, end: 201004
  6. OCELLA [Suspect]
     Dosage: UNK
     Dates: start: 201009, end: 20110704
  7. GIANVI [Suspect]
     Dosage: UNK
     Dates: start: 200903, end: 201004
  8. GIANVI [Suspect]
     Dosage: UNK
     Dates: start: 201009, end: 20110704

REACTIONS (2)
  - Pulmonary embolism [None]
  - Pulmonary infarction [None]
